FAERS Safety Report 15862983 (Version 1)
Quarter: 2018Q4

REPORT INFORMATION
  Report Type: Spontaneous
  Country: US (occurrence: US)
  Receive Date: 20181231
  Receipt Date: 20181231
  Transmission Date: 20190205
  Serious: Yes (Death)
  Sender: FDA-Public Use
  Company Number: None

PATIENT
  Age: 68 Year
  Sex: Male
  Weight: 77.2 kg

DRUGS (2)
  1. MIRCERA [Suspect]
     Active Substance: METHOXY POLYETHYLENE GLYCOL-EPOETIN BETA
     Indication: ANAEMIA
     Dosage: ?          OTHER ROUTE:INTRAVENOUS PUSH?
     Route: 040
     Dates: start: 20180406, end: 20180406
  2. VENOFER [Suspect]
     Active Substance: IRON SUCROSE
     Indication: IRON DEFICIENCY ANAEMIA
     Dosage: ?          OTHER ROUTE:INTRAVENOUS PUSH?
     Route: 040
     Dates: start: 20180323, end: 20180406

REACTIONS (3)
  - Dialysis [None]
  - Unresponsive to stimuli [None]
  - Blood pressure increased [None]

NARRATIVE: CASE EVENT DATE: 20180406
